FAERS Safety Report 25500302 (Version 1)
Quarter: 2025Q3

REPORT INFORMATION
  Report Type: Spontaneous
  Country: EU (occurrence: EU)
  Receive Date: 20250701
  Receipt Date: 20250701
  Transmission Date: 20251021
  Serious: Yes (Other)
  Sender: AUROBINDO
  Company Number: EU-AEMPS-1703621

PATIENT
  Age: 53 Year
  Sex: Female

DRUGS (2)
  1. AMOXICILLIN\CLAVULANIC ACID [Suspect]
     Active Substance: AMOXICILLIN\CLAVULANIC ACID
     Indication: Cellulitis
     Dosage: 1 DOSAGE FORM, 3 TIMES A DAY(1 TABLET EVERY 8 HOURS)
     Route: 048
     Dates: start: 20250404, end: 20250415
  2. YONDELIS [Concomitant]
     Active Substance: TRABECTEDIN
     Indication: Myxoid liposarcoma
     Route: 042
     Dates: start: 20250317, end: 20250410

REACTIONS (1)
  - Mixed liver injury [Recovered/Resolved]

NARRATIVE: CASE EVENT DATE: 20250416
